FAERS Safety Report 15747093 (Version 10)
Quarter: 2020Q1

REPORT INFORMATION
  Report Type: Spontaneous
  Country: US (occurrence: US)
  Receive Date: 20181220
  Receipt Date: 20200214
  Transmission Date: 20200409
  Serious: Yes (Hospitalization)
  Sender: FDA-Public Use
  Company Number: US-ACTELION-A-NJ2018-183534

PATIENT
  Age: 54 Year
  Sex: Female
  Weight: 79.82 kg

DRUGS (7)
  1. LETAIRIS [Concomitant]
     Active Substance: AMBRISENTAN
  2. ELIQUIS [Concomitant]
     Active Substance: APIXABAN
     Dosage: 5 MG, BID
  3. ADCIRCA [Concomitant]
     Active Substance: TADALAFIL
  4. UPTRAVI [Suspect]
     Active Substance: SELEXIPAG
     Dosage: 1000 MCG, BID
     Route: 048
  5. DILTIAZEM. [Concomitant]
     Active Substance: DILTIAZEM
  6. UPTRAVI [Suspect]
     Active Substance: SELEXIPAG
     Indication: PULMONARY HYPERTENSION
     Dosage: 800 MCG, BID
     Route: 048
  7. TADALAFIL. [Concomitant]
     Active Substance: TADALAFIL

REACTIONS (12)
  - Fluid overload [Unknown]
  - Dyspnoea [Not Recovered/Not Resolved]
  - Fluid retention [Unknown]
  - Acute respiratory failure [Unknown]
  - Hospitalisation [Unknown]
  - Localised infection [Unknown]
  - Product dose omission [Unknown]
  - Atrial fibrillation [Unknown]
  - Erythema [Unknown]
  - Drug intolerance [Unknown]
  - Oedema [Unknown]
  - Dyspnoea exertional [Not Recovered/Not Resolved]

NARRATIVE: CASE EVENT DATE: 201812
